FAERS Safety Report 13659582 (Version 1)
Quarter: 2017Q2

REPORT INFORMATION
  Report Type: Spontaneous
  Country: US (occurrence: US)
  Receive Date: 20170616
  Receipt Date: 20170616
  Transmission Date: 20170830
  Serious: Yes (Hospitalization)
  Sender: FDA-Public Use
  Company Number: None

PATIENT
  Age: 84 Year
  Sex: Female
  Weight: 113.4 kg

DRUGS (8)
  1. COLACE [Concomitant]
     Active Substance: DOCUSATE SODIUM
  2. QUINAPRIL 5MG PO DAILY [Suspect]
     Active Substance: QUINAPRIL
     Indication: HYPERTENSION
     Dosage: DATES OF USE - CHRONIC
     Route: 048
  3. ECOTRIN [Concomitant]
     Active Substance: ASPIRIN
  4. VITAMIN D3 [Concomitant]
     Active Substance: CHOLECALCIFEROL
  5. PETROLEUM [Concomitant]
     Active Substance: PETROLATUM
  6. BACTRIM DS [Suspect]
     Active Substance: SULFAMETHOXAZOLE\TRIMETHOPRIM
     Indication: URINARY TRACT INFECTION
     Dosage: DOSE AMOUNT - 800/160MG?DATES OF USE - RECENT
     Route: 048
  7. ALDACTONE [Suspect]
     Active Substance: SPIRONOLACTONE
  8. AMARYL [Concomitant]
     Active Substance: GLIMEPIRIDE

REACTIONS (1)
  - Acute kidney injury [None]

NARRATIVE: CASE EVENT DATE: 20170319
